FAERS Safety Report 14815403 (Version 8)
Quarter: 2018Q3

REPORT INFORMATION
  Report Type: Spontaneous
  Country: US (occurrence: US)
  Receive Date: 20180426
  Receipt Date: 20180907
  Transmission Date: 20181010
  Serious: Yes (Death, Hospitalization, Other)
  Sender: FDA-Public Use
  Company Number: US-PFIZER INC-2018168371

PATIENT
  Age: 71 Year
  Sex: Female
  Weight: 84 kg

DRUGS (3)
  1. IBRANCE [Suspect]
     Active Substance: PALBOCICLIB
     Indication: BREAST CANCER METASTATIC
     Dosage: 125 MG, CYCLIC (DAY 1?21, Q 28 DAYS)
     Route: 048
     Dates: start: 20180406, end: 2018
  2. IBRANCE [Suspect]
     Active Substance: PALBOCICLIB
     Dosage: 100 MG, CYCLIC (DAYS 1?28 Q28 DAYS)
     Route: 048
     Dates: start: 2018, end: 2018
  3. IBRANCE [Suspect]
     Active Substance: PALBOCICLIB
     Dosage: 75 MG, CYCLIC (D 1?21 Q 28 DAYS)
     Route: 048
     Dates: start: 20180725, end: 20180815

REACTIONS (18)
  - Asthenia [Unknown]
  - General physical health deterioration [Unknown]
  - White blood cell count decreased [Unknown]
  - Epistaxis [Unknown]
  - Blood potassium increased [Unknown]
  - Death [Fatal]
  - Pneumonia [Recovering/Resolving]
  - Red blood cell count decreased [Unknown]
  - Cardiac flutter [Recovered/Resolved]
  - Platelet count decreased [Unknown]
  - Condition aggravated [Unknown]
  - Contusion [Unknown]
  - Decreased appetite [Unknown]
  - Thrombosis [Unknown]
  - Dyspnoea [Unknown]
  - Erythema [Unknown]
  - Cough [Unknown]
  - Alopecia [Unknown]

NARRATIVE: CASE EVENT DATE: 2018
